FAERS Safety Report 19765277 (Version 1)
Quarter: 2021Q3

REPORT INFORMATION
  Report Type: Spontaneous
  Country: GB (occurrence: GB)
  Receive Date: 20210831
  Receipt Date: 20210831
  Transmission Date: 20211014
  Serious: Yes (Disabling, Other)
  Sender: FDA-Public Use
  Company Number: GB-ALKEM LABORATORIES LIMITED-GB-ALKEM-2021-05478

PATIENT
  Age: 42 Year
  Sex: Female
  Weight: 118.83 kg

DRUGS (3)
  1. CITALOPRAM HYDROBROMIDE. [Concomitant]
     Active Substance: CITALOPRAM HYDROBROMIDE
     Indication: PRODUCT USED FOR UNKNOWN INDICATION
     Dosage: UNK
     Route: 065
  2. CERAZETTE [Concomitant]
     Indication: PRODUCT USED FOR UNKNOWN INDICATION
     Dosage: UNK
     Route: 065
  3. PREGABALIN. [Suspect]
     Active Substance: PREGABALIN
     Indication: BACK PAIN
     Dosage: 150 MILLIGRAM
     Route: 048
     Dates: start: 20210813, end: 20210813

REACTIONS (10)
  - Nausea [Recovering/Resolving]
  - Balance disorder [Not Recovered/Not Resolved]
  - Dizziness [Not Recovered/Not Resolved]
  - Feeling hot [Recovering/Resolving]
  - Temperature regulation disorder [Recovering/Resolving]
  - Hyperhidrosis [Recovering/Resolving]
  - Body temperature increased [Recovering/Resolving]
  - Tremor [Recovering/Resolving]
  - Paraesthesia [Recovering/Resolving]
  - Jaw disorder [Recovering/Resolving]

NARRATIVE: CASE EVENT DATE: 20210813
